FAERS Safety Report 16476803 (Version 4)
Quarter: 2022Q1

REPORT INFORMATION
  Report Type: Spontaneous
  Country: US (occurrence: US)
  Receive Date: 20190626
  Receipt Date: 20220207
  Transmission Date: 20220424
  Serious: Yes (Hospitalization, Other)
  Sender: FDA-Public Use
  Company Number: US-GLAXOSMITHKLINE-US2019AMR113733

PATIENT
  Sex: Male

DRUGS (1)
  1. ADVAIR DISKUS [Suspect]
     Active Substance: FLUTICASONE PROPIONATE\SALMETEROL XINAFOATE
     Indication: Chronic obstructive pulmonary disease
     Dosage: 1 PUFF(S), BID, 250/50
     Route: 055
     Dates: start: 2014

REACTIONS (7)
  - Cerebrovascular accident [Unknown]
  - Deep vein thrombosis [Unknown]
  - Kidney rupture [Unknown]
  - Blood disorder [Unknown]
  - Dry mouth [Unknown]
  - Amnesia [Unknown]
  - Tremor [Unknown]
